FAERS Safety Report 23098193 (Version 2)
Quarter: 2023Q4

REPORT INFORMATION
  Report Type: Spontaneous
  Country: IT (occurrence: IT)
  Receive Date: 20231023
  Receipt Date: 20231026
  Transmission Date: 20240110
  Serious: Yes (Other)
  Sender: FDA-Public Use
  Company Number: IT-BAUSCH-BL-2023-015603

PATIENT
  Age: 16 Year
  Sex: Male

DRUGS (9)
  1. DEXAMETHASONE [Suspect]
     Active Substance: DEXAMETHASONE
     Indication: Acute lymphocytic leukaemia
     Dosage: PROTOCOL AIEOP-BFM ALL 2017
     Route: 065
  2. DEXAMETHASONE [Suspect]
     Active Substance: DEXAMETHASONE
     Dosage: SHORT COURSE
     Route: 065
  3. DEXAMETHASONE [Suspect]
     Active Substance: DEXAMETHASONE
     Dosage: SECOND CYCLE OF VENETOCLAX PLUS NAVITOCLAX WITH DEXAMETHASONE
     Route: 065
  4. INOTUZUMAB OZOGAMICIN [Suspect]
     Active Substance: INOTUZUMAB OZOGAMICIN
     Indication: Acute lymphocytic leukaemia
     Dosage: FIRST COURSE DIVIDED IN THREE DOSES AT DAY 1, 8 AND 15
     Route: 065
  5. INOTUZUMAB OZOGAMICIN [Suspect]
     Active Substance: INOTUZUMAB OZOGAMICIN
     Dosage: SECOND CYCLE DIVIDED IN THREE DOSES AT DAY 8, 15, 21
     Route: 065
  6. VENETOCLAX [Suspect]
     Active Substance: VENETOCLAX
     Indication: Acute lymphocytic leukaemia
     Dosage: WITH TWO-STEP INCREASE STARTING FROM 100 MG
     Route: 065
  7. VENETOCLAX [Suspect]
     Active Substance: VENETOCLAX
     Dosage: SECOND CYCLE OF VENETOCLAX PLUS NAVITOCLAX WITH DEXAMETHASONE
     Route: 065
  8. NAVITOCLAX [Suspect]
     Active Substance: NAVITOCLAX
     Indication: Acute lymphocytic leukaemia
     Dosage: WITH ONE-STEP INCREASE STARTING FROM 25 MG
     Route: 065
  9. NAVITOCLAX [Suspect]
     Active Substance: NAVITOCLAX
     Dosage: SECOND CYCLE OF VENETOCLAX PLUS NAVITOCLAX WITH DEXAMETHASONE
     Route: 065

REACTIONS (3)
  - Neutropenia [Recovered/Resolved]
  - Treatment failure [Unknown]
  - Diarrhoea [Recovered/Resolved]
